FAERS Safety Report 18147114 (Version 3)
Quarter: 2020Q3

REPORT INFORMATION
  Report Type: Report from Study
  Country: BR (occurrence: BR)
  Receive Date: 20200813
  Receipt Date: 20200908
  Transmission Date: 20201103
  Serious: Yes (Other)
  Sender: FDA-Public Use
  Company Number: NVSC2020BR190233

PATIENT
  Age: 30 Year
  Sex: Female
  Weight: 56 kg

DRUGS (8)
  1. EUTHYROX [Concomitant]
     Active Substance: LEVOTHYROXINE SODIUM
     Indication: HYPOTHYROIDISM
     Dosage: 125 MG, QD
     Route: 048
     Dates: start: 2005
  2. COSENTYX [Suspect]
     Active Substance: SECUKINUMAB
     Indication: SPONDYLITIS
     Dosage: 150 MG, Q2W (EVERY 15 DAYS)
     Route: 065
     Dates: start: 201904
  3. XOLAIR [Suspect]
     Active Substance: OMALIZUMAB
     Indication: CHRONIC SPONTANEOUS URTICARIA
     Dosage: 2 DF, QMO (02 AMPOULES)
     Route: 058
     Dates: start: 202006
  4. DESLORATADINE. [Suspect]
     Active Substance: DESLORATADINE
     Indication: ANGIOEDEMA
     Dosage: UNK(2 TO 4 TABLETS STARTED IN AN UNSPECIFIED DATE IN JUN)
     Route: 048
  5. COSENTYX [Suspect]
     Active Substance: SECUKINUMAB
     Indication: ANKYLOSING SPONDYLITIS
     Dosage: 150 MG, UNKNOWN
     Route: 065
     Dates: start: 20190408, end: 201904
  6. DESLORATADINE. [Suspect]
     Active Substance: DESLORATADINE
     Indication: CHRONIC SPONTANEOUS URTICARIA
  7. COSENTYX [Suspect]
     Active Substance: SECUKINUMAB
     Dosage: UNK, Q2W (EVERY 15 DAYS)
     Route: 058
     Dates: start: 2019
  8. XOLAIR [Suspect]
     Active Substance: OMALIZUMAB
     Indication: ANGIOEDEMA
     Dosage: UNK
     Route: 065
     Dates: start: 20200605

REACTIONS (11)
  - Peripheral swelling [Unknown]
  - Product prescribing error [Not Recovered/Not Resolved]
  - Pain in extremity [Recovered/Resolved]
  - Rash macular [Unknown]
  - Drug ineffective [Not Recovered/Not Resolved]
  - Eye swelling [Unknown]
  - Lip swelling [Unknown]
  - Urticaria [Recovering/Resolving]
  - Inappropriate schedule of product administration [Not Recovered/Not Resolved]
  - Angioedema [Unknown]
  - Swelling face [Unknown]

NARRATIVE: CASE EVENT DATE: 201912
